FAERS Safety Report 13736788 (Version 1)
Quarter: 2017Q3

REPORT INFORMATION
  Report Type: Spontaneous
  Country: FR (occurrence: FR)
  Receive Date: 20170710
  Receipt Date: 20170710
  Transmission Date: 20171127
  Serious: Yes (Life-Threatening)
  Sender: FDA-Public Use
  Company Number: FR-BAYER-2017-129101

PATIENT
  Age: 32 Year
  Sex: Female

DRUGS (1)
  1. MIRENA [Suspect]
     Active Substance: LEVONORGESTREL
     Indication: CONTRACEPTION
     Dosage: 20 MCG/24HR, CONT
     Route: 015
     Dates: start: 200908, end: 201605

REACTIONS (11)
  - Hypertension [Recovered/Resolved with Sequelae]
  - Depression [Unknown]
  - Libido decreased [Unknown]
  - Aneurysm ruptured [Recovered/Resolved]
  - Skin hyperpigmentation [Unknown]
  - Back pain [Unknown]
  - Abdominal pain [Unknown]
  - Mood swings [Unknown]
  - Migraine [Unknown]
  - Weight increased [Unknown]
  - Anxiety [Unknown]

NARRATIVE: CASE EVENT DATE: 201601
